FAERS Safety Report 15220135 (Version 1)
Quarter: 2018Q3

REPORT INFORMATION
  Report Type: Spontaneous
  Country: US (occurrence: US)
  Receive Date: 20180731
  Receipt Date: 20180731
  Transmission Date: 20181010
  Serious: No
  Sender: FDA-Public Use
  Company Number: US-PFIZER INC-2018303197

PATIENT
  Age: 84 Year
  Sex: Female

DRUGS (2)
  1. CENTRUM SILVER WOMEN^S 50+ [Suspect]
     Active Substance: MINERALS\VITAMINS
     Dosage: UNK
  2. DIAZEPAM. [Suspect]
     Active Substance: DIAZEPAM
     Dosage: UNK

REACTIONS (1)
  - Pollakiuria [Recovering/Resolving]
